FAERS Safety Report 8834168 (Version 1)
Quarter: 2012Q4

REPORT INFORMATION
  Report Type: 
  Country: IT (occurrence: IT)
  Receive Date: 20121010
  Receipt Date: 20121010
  Transmission Date: 20130627
  Serious: Yes (Other)
  Sender: FDA-Public Use
  Company Number: IT-ROCHE-1114835

PATIENT
  Age: 67 Year
  Sex: Female

DRUGS (2)
  1. ROCEFIN [Suspect]
     Indication: PHLEBITIS
     Route: 030
     Dates: start: 20120821, end: 20120825
  2. CARBAZOCHROME [Suspect]
     Indication: PHLEBITIS
     Route: 030
     Dates: start: 20120821, end: 20120825

REACTIONS (2)
  - Angioedema [Unknown]
  - Rash [Unknown]
